FAERS Safety Report 15376604 (Version 8)
Quarter: 2020Q2

REPORT INFORMATION
  Report Type: Spontaneous
  Country: IT (occurrence: IT)
  Receive Date: 20180912
  Receipt Date: 20200505
  Transmission Date: 20200713
  Serious: Yes (Death, Hospitalization)
  Sender: FDA-Public Use
  Company Number: IT-CELGENEUS-ITA-20180806026

PATIENT
  Age: 81 Year
  Sex: Female
  Weight: 51.6 kg

DRUGS (28)
  1. AZACITIDINE. [Suspect]
     Active Substance: AZACITIDINE
     Indication: ACUTE MYELOID LEUKAEMIA
     Route: 058
     Dates: start: 20180320, end: 20180718
  2. ROVAMICINA [Concomitant]
     Active Substance: SPIRAMYCIN
     Indication: STOMATITIS
     Dosage: 3000000 IU (INTERNATIONAL UNIT)
     Route: 048
     Dates: start: 20180614
  3. SPIROFUR [Concomitant]
     Active Substance: FUROSEMIDE\SPIRONOLACTONE
     Indication: PROPHYLAXIS
     Dosage: 50+20MG
     Route: 048
     Dates: start: 20180423
  4. ALLOPURINOL SODIUM. [Concomitant]
     Active Substance: ALLOPURINOL SODIUM
     Route: 065
  5. BACTRIM [Concomitant]
     Active Substance: SULFAMETHOXAZOLE\TRIMETHOPRIM
     Indication: ANTIBIOTIC PROPHYLAXIS
     Route: 048
     Dates: start: 20180824
  6. LASIX [Concomitant]
     Active Substance: FUROSEMIDE
     Indication: PROPHYLAXIS
     Dosage: 25 MILLIGRAM
     Route: 048
     Dates: start: 20180325
  7. CORDARONE [Concomitant]
     Active Substance: AMIODARONE HYDROCHLORIDE
     Indication: PNEUMONIA
     Route: 065
  8. NORMAL SALINE SOLUTION [Concomitant]
     Indication: TUMOUR LYSIS SYNDROME
     Dosage: .9 PERCENT
     Route: 041
     Dates: start: 20180319, end: 20180323
  9. MEDROL [Concomitant]
     Active Substance: METHYLPREDNISOLONE
     Indication: RASH
     Dosage: 8 MILLIGRAM
     Route: 048
     Dates: start: 20180521
  10. NORMAL SALINE SOLUTION [Concomitant]
     Dosage: .9 PERCENT
     Route: 041
     Dates: start: 20180324, end: 20180328
  11. LEVOFLOXACINE [Concomitant]
     Active Substance: LEVOFLOXACIN
     Indication: INFECTION PROPHYLAXIS
     Dosage: 500 MILLIGRAM
     Route: 048
     Dates: start: 20180329
  12. TICHE [Concomitant]
     Indication: PROPHYLAXIS
     Dosage: 100 MICROGRAM
     Route: 048
     Dates: start: 20180424
  13. TICHE [Concomitant]
     Dosage: 50 MICROGRAM
     Route: 048
     Dates: start: 20180423
  14. TICHE [Concomitant]
     Dosage: 50 MICROGRAM
     Route: 048
     Dates: start: 20180303, end: 20180423
  15. VENETOCLAX. [Concomitant]
     Active Substance: VENETOCLAX
     Indication: ACUTE MYELOID LEUKAEMIA
     Dosage: 10 MILLIGRAM
     Route: 048
     Dates: start: 20180320, end: 20180320
  16. NORVASC [Concomitant]
     Active Substance: AMLODIPINE BESYLATE
     Indication: HYPERTENSION
     Dosage: 5 MILLIGRAM
     Route: 048
     Dates: start: 20180312
  17. POSACONAZOLE [Concomitant]
     Active Substance: POSACONAZOLE
     Indication: ANTIFUNGAL PROPHYLAXIS
     Dosage: 300 MILLIGRAM
     Route: 048
     Dates: start: 20180329
  18. AUGMENTIN [Concomitant]
     Active Substance: AMOXICILLIN\CLAVULANATE POTASSIUM
     Indication: ANTIBIOTIC PROPHYLAXIS
     Dosage: 2 GRAM
     Route: 065
     Dates: start: 20180824
  19. CETIRIZIMA [Concomitant]
     Indication: PRURITUS
     Route: 048
     Dates: start: 20180514
  20. VENETOCLAX. [Concomitant]
     Active Substance: VENETOCLAX
     Dosage: 20 MILLIGRAM
     Route: 048
     Dates: start: 20180321, end: 20180321
  21. MEDROL [Concomitant]
     Active Substance: METHYLPREDNISOLONE
     Dosage: 16 MILLIGRAM
     Route: 048
     Dates: start: 20180514, end: 20180520
  22. POSACONAZOLE [Concomitant]
     Active Substance: POSACONAZOLE
     Dosage: 600 MILLIGRAM
     Route: 048
     Dates: start: 20180320, end: 20180329
  23. TIOTROPIO [Concomitant]
     Active Substance: TIOTROPIUM BROMIDE
     Indication: PNEUMONIA
     Dosage: 18 MICROGRAM
     Route: 055
     Dates: start: 20180410
  24. CORDARONE [Concomitant]
     Active Substance: AMIODARONE HYDROCHLORIDE
     Indication: ATRIAL FIBRILLATION
     Dosage: 400 MILLIGRAM
     Route: 048
     Dates: start: 20180815
  25. ALLOPURINOL SODIUM. [Concomitant]
     Active Substance: ALLOPURINOL SODIUM
     Indication: TUMOUR LYSIS SYNDROME
     Dosage: 600 MILLIGRAM
     Route: 065
     Dates: start: 20180319, end: 20180325
  26. VENETOCLAX. [Concomitant]
     Active Substance: VENETOCLAX
     Dosage: 50 MILLIGRAM
     Route: 065
     Dates: start: 20180322, end: 20180808
  27. PANTORC [Concomitant]
     Active Substance: PANTOPRAZOLE SODIUM
     Indication: GASTRITIS PROPHYLAXIS
     Dosage: 40 MILLIGRAM
     Route: 048
     Dates: start: 20180303
  28. CLEXANE [Concomitant]
     Active Substance: ENOXAPARIN SODIUM
     Indication: THROMBOSIS PROPHYLAXIS
     Dosage: 4000 IU (INTERNATIONAL UNIT)
     Route: 058
     Dates: start: 20180319

REACTIONS (2)
  - Pneumonitis [Fatal]
  - Pneumonia [Recovered/Resolved]

NARRATIVE: CASE EVENT DATE: 20180810
